FAERS Safety Report 5867899-3 (Version None)
Quarter: 2008Q3

REPORT INFORMATION
  Report Type: 
  Country: None (occurrence: None)
  Receive Date: 20080902
  Receipt Date: 20080827
  Transmission Date: 20090109
  Serious: Yes (Hospitalization, Disabling)
  Sender: FDA-Public Use
  Company Number: JP-BOEHRINGER INGELHEIM GMBH, GERMANY-2008-BP-12259NB

PATIENT
  Sex: Female
  Weight: 41 kg

DRUGS (7)
  1. MOBIC [Suspect]
     Indication: OSTEOARTHRITIS
     Route: 048
     Dates: start: 20080530, end: 20080728
  2. DIOVAN [Concomitant]
     Indication: HYPERTENSION
     Route: 048
     Dates: start: 20080530
  3. MUCOSTA [Concomitant]
     Indication: GASTRITIS
     Route: 048
     Dates: start: 20080530
  4. FERO-GRADUMET (FERROUS SULFATE) [Concomitant]
     Indication: ANAEMIA
     Route: 048
     Dates: start: 20080530
  5. CONIEL [Concomitant]
     Indication: HYPERTENSION
     Route: 048
     Dates: start: 20080530
  6. POLYFUL [Concomitant]
     Indication: CONSTIPATION
     Route: 048
     Dates: start: 20080530, end: 20080728
  7. NERIPROCT SUPPOS. (DIFLUCORTOLONE VALERATE_LIDOCAINE [Concomitant]
     Indication: HAEMORRHOIDS
     Route: 065
     Dates: start: 20080530, end: 20080728

REACTIONS (2)
  - SKIN NECROSIS [None]
  - SKIN ULCER [None]
